FAERS Safety Report 4339583-9 (Version None)
Quarter: 2004Q1

REPORT INFORMATION
  Report Type: 
  Country: None (occurrence: None)
  Receive Date: 20040329
  Receipt Date: 20040108
  Transmission Date: 20041129
  Serious: No
  Sender: FDA-Public Use
  Company Number: 04P-163-0246646-00

PATIENT
  Age: 85 Year
  Sex: Female
  Weight: 63.5036 kg

DRUGS (9)
  1. HUMIRA [Suspect]
     Indication: RHEUMATOID ARTHRITIS
     Dosage: 40 MG, 1 IN 2 WK, SUBCUTANEOUS; 40 MG, 1 IN 1 WK, SUBCUTANEOUS; 40 MG, 1 IN 2 WK, SUBCUTANEOUS
     Route: 058
     Dates: start: 20030701, end: 20031101
  2. HUMIRA [Suspect]
     Indication: RHEUMATOID ARTHRITIS
     Dosage: 40 MG, 1 IN 2 WK, SUBCUTANEOUS; 40 MG, 1 IN 1 WK, SUBCUTANEOUS; 40 MG, 1 IN 2 WK, SUBCUTANEOUS
     Route: 058
     Dates: start: 20031101, end: 20040101
  3. HUMIRA [Suspect]
     Indication: RHEUMATOID ARTHRITIS
     Dosage: 40 MG, 1 IN 2 WK, SUBCUTANEOUS; 40 MG, 1 IN 1 WK, SUBCUTANEOUS; 40 MG, 1 IN 2 WK, SUBCUTANEOUS
     Route: 058
     Dates: start: 20040101
  4. METHOTREXATE SODIUM [Concomitant]
  5. AMLODIPINE BESYLATE [Concomitant]
  6. RABEPRAZOLE SODIUM [Concomitant]
  7. CELECOXIB [Concomitant]
  8. FOLIC ACID [Concomitant]
  9. TOCOPHEROL CONCENTRATE CAP [Concomitant]

REACTIONS (7)
  - DRUG INEFFECTIVE [None]
  - HYPOVENTILATION [None]
  - INFLUENZA LIKE ILLNESS [None]
  - INJECTION SITE BURNING [None]
  - MOBILITY DECREASED [None]
  - PAIN EXACERBATED [None]
  - URINARY TRACT INFECTION [None]
